FAERS Safety Report 4290486-8 (Version None)
Quarter: 2004Q1

REPORT INFORMATION
  Report Type: 
  Country: None (occurrence: None)
  Receive Date: 20040126
  Receipt Date: 20031002
  Transmission Date: 20041129
  Serious: No
  Sender: FDA-Public Use
  Company Number: USA030433963

PATIENT
  Age: 85 Year
  Sex: Female

DRUGS (8)
  1. FORTEO [Suspect]
     Indication: OSTEOPOROSIS
     Dates: start: 20030320
  2. FUROSEMIDE [Concomitant]
  3. HYDROCHLOROTHIAZIDE [Concomitant]
  4. ENALAPRIL MALEATE [Concomitant]
  5. NEXIUM [Concomitant]
  6. CALCIUM [Concomitant]
  7. VITAMIN D [Concomitant]
  8. FISH OIL [Concomitant]

REACTIONS (5)
  - ACCIDENTAL NEEDLE STICK [None]
  - BALANCE DISORDER [None]
  - INJECTION SITE HAEMORRHAGE [None]
  - MUSCULAR WEAKNESS [None]
  - POSTURE ABNORMAL [None]
